FAERS Safety Report 7799914-4 (Version None)
Quarter: 2011Q4

REPORT INFORMATION
  Report Type: 
  Country: None (occurrence: None)
  Receive Date: 20111004
  Receipt Date: 20110917
  Transmission Date: 20120403
  Serious: Yes (Other)
  Sender: FDA-Public Use
  Company Number: 2011SP044157

PATIENT
  Sex: Female

DRUGS (2)
  1. RIBAVIRIN [Suspect]
     Indication: HEPATITIS C
     Dates: start: 20090101, end: 20091101
  2. INFERGEN [Suspect]
     Indication: HEPATITIS C
     Dates: start: 20090101, end: 20091101

REACTIONS (6)
  - FALL [None]
  - INFLUENZA LIKE ILLNESS [None]
  - AMNESIA [None]
  - LOSS OF CONSCIOUSNESS [None]
  - CONCUSSION [None]
  - DYSARTHRIA [None]
